FAERS Safety Report 13356380 (Version 1)
Quarter: 2017Q1

REPORT INFORMATION
  Report Type: Spontaneous
  Country: US (occurrence: US)
  Receive Date: 20170321
  Receipt Date: 20170321
  Transmission Date: 20170429
  Serious: Yes (Other)
  Sender: FDA-Public Use
  Company Number: PHHY2017US036539

PATIENT
  Age: 52 Year
  Sex: Male

DRUGS (5)
  1. CLOZAPINE. [Interacting]
     Active Substance: CLOZAPINE
     Dosage: 700 MG, QD
     Route: 065
  2. PROPRANOLOL [Interacting]
     Active Substance: PROPRANOLOL HYDROCHLORIDE
     Dosage: 20 UNK, UNK
     Route: 065
  3. CLOZAPINE. [Interacting]
     Active Substance: CLOZAPINE
     Indication: SCHIZOAFFECTIVE DISORDER BIPOLAR TYPE
     Dosage: 600 MG, QD
     Route: 065
  4. CLOZAPINE. [Interacting]
     Active Substance: CLOZAPINE
     Dosage: 600 MG, QD
     Route: 065
  5. PROPRANOLOL [Suspect]
     Active Substance: PROPRANOLOL HYDROCHLORIDE
     Indication: HYPERTENSION
     Dosage: 30 MG, QD
     Route: 065

REACTIONS (4)
  - Psychotic disorder [Unknown]
  - Aggression [Unknown]
  - Drug interaction [Unknown]
  - Akathisia [Unknown]
